FAERS Safety Report 18538666 (Version 1)
Quarter: 2020Q4

REPORT INFORMATION
  Report Type: Spontaneous
  Country: IN (occurrence: IN)
  Receive Date: 20201124
  Receipt Date: 20201124
  Transmission Date: 20210114
  Serious: Yes (Other)
  Sender: FDA-Public Use
  Company Number: IN-GLENMARK PHARMACEUTICALS-2020GMK050532

PATIENT
  Age: 24 Year
  Sex: Male

DRUGS (2)
  1. TACROLIMUS. [Suspect]
     Active Substance: TACROLIMUS
     Indication: IMMUNOSUPPRESSION
     Dosage: UNK
     Route: 065
     Dates: start: 201809
  2. MYCOPHENOLATE MOFETIL. [Suspect]
     Active Substance: MYCOPHENOLATE MOFETIL
     Indication: IMMUNOSUPPRESSION
     Dosage: UNK
     Route: 065
     Dates: start: 201809

REACTIONS (4)
  - Iridocyclitis [Recovering/Resolving]
  - Varicella zoster virus infection [Recovering/Resolving]
  - Disseminated varicella [Recovering/Resolving]
  - Necrotising retinitis [Recovered/Resolved]

NARRATIVE: CASE EVENT DATE: 201812
